FAERS Safety Report 6883558-2 (Version None)
Quarter: 2010Q3

REPORT INFORMATION
  Report Type: 
  Country: None (occurrence: None)
  Receive Date: 20100729
  Receipt Date: 20100722
  Transmission Date: 20110219
  Serious: Yes (Hospitalization)
  Sender: FDA-Public Use
  Company Number: CH-BAYER-201033546GPV

PATIENT
  Age: 21 Year
  Sex: Male
  Weight: 70 kg

DRUGS (4)
  1. CIPROX [Suspect]
     Indication: DIARRHOEA
     Dosage: TOTAL DAILY DOSE: 1000 MG
     Route: 048
     Dates: start: 20100529, end: 20100530
  2. TORECAN [Suspect]
     Indication: DIARRHOEA
     Dosage: TOTAL DAILY DOSE: 6.5 MG
     Route: 048
     Dates: start: 20100529, end: 20100530
  3. LOPERAMIDE [Concomitant]
     Indication: DIARRHOEA
     Route: 048
     Dates: start: 20100529
  4. PANTOZOL [Concomitant]
     Indication: DIARRHOEA
     Route: 048
     Dates: start: 20100529

REACTIONS (5)
  - EXTRAPYRAMIDAL DISORDER [None]
  - FACIAL SPASM [None]
  - HYPERHIDROSIS [None]
  - MUSCLE SPASMS [None]
  - SPEECH DISORDER [None]
